FAERS Safety Report 7514679-9 (Version None)
Quarter: 2011Q2

REPORT INFORMATION
  Report Type: 
  Country: None (occurrence: None)
  Receive Date: 20110601
  Receipt Date: 20100719
  Transmission Date: 20111010
  Serious: No
  Sender: FDA-Public Use
  Company Number: US-BAYER-201030834NA

PATIENT
  Sex: Female
  Weight: 181.41 kg

DRUGS (1)
  1. MIRENA [Suspect]
     Indication: PROPHYLAXIS
     Dosage: 20 ?G/D, CONT
     Route: 015

REACTIONS (2)
  - GENITAL HAEMORRHAGE [None]
  - SKIN ODOUR ABNORMAL [None]
